FAERS Safety Report 15356562 (Version 3)
Quarter: 2019Q4

REPORT INFORMATION
  Report Type: Spontaneous
  Country: US (occurrence: US)
  Receive Date: 20180906
  Receipt Date: 20191227
  Transmission Date: 20200122
  Serious: No
  Sender: FDA-Public Use
  Company Number: US-BIOGEN-2018BI00625823

PATIENT
  Age: 62 Year
  Sex: Female

DRUGS (1)
  1. PLEGRIDY [Suspect]
     Active Substance: PEGINTERFERON BETA-1A
     Indication: MULTIPLE SCLEROSIS
     Route: 050
     Dates: start: 20150330

REACTIONS (9)
  - Calcium deficiency [Unknown]
  - Fall [Recovered/Resolved]
  - Accident [Recovered/Resolved]
  - Injection site reaction [Not Recovered/Not Resolved]
  - Injury [Unknown]
  - Eye disorder [Not Recovered/Not Resolved]
  - Upper limb fracture [Recovered/Resolved]
  - Influenza like illness [Unknown]
  - Lower limb fracture [Recovered/Resolved]

NARRATIVE: CASE EVENT DATE: 2018
